FAERS Safety Report 9756510 (Version 1)
Quarter: 2013Q4

REPORT INFORMATION
  Report Type: Spontaneous
  Country: US (occurrence: US)
  Receive Date: 20131213
  Receipt Date: 20131213
  Transmission Date: 20140711
  Serious: No
  Sender: FDA-Public Use
  Company Number: US-GLAXOSMITHKLINE-A1043844A

PATIENT
  Age: 50 Year
  Sex: Male

DRUGS (4)
  1. NICODERM CQ CLEAR 21MG [Suspect]
     Indication: EX-TOBACCO USER
     Dosage: 21MG UNKNOWN
     Route: 065
     Dates: start: 20131001
  2. WALGREENS NICOTINE TRANSDERMAL SYSTEM PATCH CLEAR, 21MG [Suspect]
     Indication: EX-TOBACCO USER
     Dosage: 21MG UNKNOWN
     Route: 065
  3. WALGREENS NICOTINE TRANSDERMAL SYSTEM PATCH CLEAR, 14MG [Suspect]
     Indication: EX-TOBACCO USER
     Dosage: 14MG UNKNOWN
     Route: 065
  4. COFFEE [Suspect]
     Indication: PRODUCT USED FOR UNKNOWN INDICATION
     Route: 065

REACTIONS (14)
  - Nausea [Recovering/Resolving]
  - Abnormal dreams [Recovered/Resolved]
  - Decreased appetite [Not Recovered/Not Resolved]
  - Headache [Recovered/Resolved]
  - Dyspnoea [Recovered/Resolved]
  - Panic attack [Recovered/Resolved]
  - Application site erythema [Recovered/Resolved]
  - Application site reaction [Recovered/Resolved]
  - Application site swelling [Recovered/Resolved]
  - Application site pain [Recovered/Resolved]
  - Poor quality sleep [Recovered/Resolved]
  - Drug ineffective [Unknown]
  - Drug administration error [Unknown]
  - Nicotine dependence [Unknown]
